FAERS Safety Report 9206207 (Version 3)
Quarter: 2013Q2

REPORT INFORMATION
  Report Type: Spontaneous
  Country: US (occurrence: US)
  Receive Date: 20130403
  Receipt Date: 20130528
  Transmission Date: 20140414
  Serious: No
  Sender: FDA-Public Use
  Company Number: US-PFIZER INC-2013101676

PATIENT
  Age: 50 Year
  Sex: Male
  Weight: 94 kg

DRUGS (28)
  1. GENOTROPIN [Suspect]
     Indication: HYPOPITUITARISM
     Dosage: 0.8 MG, DAILY
     Route: 058
     Dates: start: 1994
  2. GENOTROPIN [Suspect]
     Indication: HORMONE REPLACEMENT THERAPY
  3. DOSTINEX [Concomitant]
     Dosage: 0.5 MG, 2X/WEEK
     Route: 048
  4. SYNTHROID [Concomitant]
     Dosage: 300 UG, 1X/DAY
  5. DEPO-TESTOSTERONE [Concomitant]
     Dosage: 2 ML, WEEKLY
     Route: 030
  6. CORTEF [Concomitant]
     Dosage: 1.5 DF (TABLE OF 10MG) IN AM AND 0.5 DF IN PM
  7. ZESTRIL [Concomitant]
     Dosage: 5 MG, UNK
  8. LIPITOR [Concomitant]
     Dosage: 20 MG, 1X/DAY (2 TABLET ORALLY)
     Route: 048
  9. BENTYL [Concomitant]
     Dosage: 40 MG(TWO TABLETS OF 20MG), 3X/DAY
  10. AMITIZA [Concomitant]
     Dosage: 24 UG, 2X/DAY
  11. TOPROL XL [Concomitant]
     Dosage: 100 MG, 1X/DAY
  12. ACIPHEX [Concomitant]
     Dosage: 20 MG, 1X/DAY
  13. PHENERGAN [Concomitant]
     Dosage: 25 MG, 2X/DAY
  14. WELLBUTRIN [Concomitant]
     Dosage: 450 MG(300MG AND 150MG), 1X/DAY
  15. METHYLIN ER [Concomitant]
     Dosage: 2 DF, 2X/DAY (TWO TABLETS OF 10MG), 9
  16. XANAX [Concomitant]
     Dosage: FIVE TABLETS OF 0.5MG IN A DAY
  17. GEODON [Concomitant]
     Dosage: 40 MG, 2X/DAY
  18. SEROQUEL [Concomitant]
     Dosage: 450 MG, 1X/DAY (TAKE 1 TABLET AT BEDTIME)
  19. FLOMAX [Concomitant]
     Dosage: 2 DF (TWO CAPSULES OF 0.4MG ) DAILY
  20. VERAMYST [Concomitant]
     Dosage: 27.5 UG, 2X/DAY (2 SPAYS IN EACH NOSTRIL ONCE DAILY)
  21. WELLBUTRIN SR [Concomitant]
     Dosage: 150 MG, 1X/DAY
  22. WELLBUTRIN XL [Concomitant]
     Dosage: 300 MG, 1X/DAY
  23. TRICOR [Concomitant]
     Dosage: 145 MG, 1X/DAY
  24. LEVOTHYROXINE SODIUM [Concomitant]
     Dosage: 300 UG, 1X/DAY
  25. LISINOPRIL [Concomitant]
     Dosage: 5 MG, 1X/DAY
  26. CONCERTA [Concomitant]
     Dosage: 36 MG, 1X/DAY (2 TABLETS DAILY)
  27. PROMETHAZINE HYDROCHLORIDE [Concomitant]
     Dosage: 25 MG, 1X/DAY
     Route: 048
  28. TESTOSTERONE CIPIONATE [Concomitant]
     Dosage: 200 MG/ML INJECT 1-5 ML AS DIRECTED EVERY 2 WEEKS

REACTIONS (3)
  - Expired drug administered [Unknown]
  - Insulin-like growth factor decreased [Unknown]
  - Blood growth hormone decreased [Recovered/Resolved]
